FAERS Safety Report 10596677 (Version 3)
Quarter: 2015Q3

REPORT INFORMATION
  Report Type: Spontaneous
  Country: FR (occurrence: FR)
  Receive Date: 20141120
  Receipt Date: 20150821
  Transmission Date: 20151125
  Serious: Yes (Life-Threatening, Hospitalization, Other)
  Sender: FDA-Public Use
  Company Number: FR-GLAXOSMITHKLINE-FR2014GSK007230

PATIENT
  Age: 78 Year
  Sex: Male
  Weight: 76 kg

DRUGS (5)
  1. ZOCOR [Concomitant]
     Active Substance: SIMVASTATIN
  2. KARDEGIC [Concomitant]
     Active Substance: ASPIRIN LYSINE
  3. AVODART [Suspect]
     Active Substance: DUTASTERIDE
     Indication: BENIGN PROSTATIC HYPERPLASIA
     Dosage: 1 DF, QD
     Dates: start: 20080901
  4. FLECAINE [Concomitant]
     Active Substance: FLECAINIDE
     Indication: CARDIAC DISORDER
     Dosage: 1 UNK, QD
     Route: 048
     Dates: start: 20070417
  5. LASILIX [Concomitant]
     Active Substance: FUROSEMIDE
     Indication: DYSPNOEA

REACTIONS (10)
  - Oedema peripheral [Recovered/Resolved]
  - Dyspnoea exertional [Recovered/Resolved]
  - Orthopnoea [Unknown]
  - Musculoskeletal pain [Unknown]
  - Gynaecomastia [Unknown]
  - Vertebrobasilar insufficiency [Unknown]
  - Cardiac disorder [Not Recovered/Not Resolved]
  - Asthenia [Unknown]
  - Osteoarthritis [Unknown]
  - Constipation [Unknown]

NARRATIVE: CASE EVENT DATE: 2014
